FAERS Safety Report 8886335 (Version 1)
Quarter: 2012Q4

REPORT INFORMATION
  Report Type: 
  Country: US (occurrence: US)
  Receive Date: 20121105
  Receipt Date: 20121105
  Transmission Date: 20130627
  Serious: Yes (Disabling, Other)
  Sender: FDA-Public Use
  Company Number: US-ASTRAZENECA-2012SE81955

PATIENT
  Age: 66 Year
  Sex: Male
  Weight: 129.7 kg

DRUGS (26)
  1. CRESTOR [Suspect]
     Indication: BLOOD CHOLESTEROL INCREASED
     Route: 048
     Dates: start: 1999, end: 2010
  2. LISINOPRIL [Suspect]
     Indication: BLOOD PRESSURE ABNORMAL
     Route: 048
  3. METOPROLOL SUCCINATE [Suspect]
     Indication: BLOOD PRESSURE ABNORMAL
     Route: 048
     Dates: start: 2000, end: 2012
  4. COMBIVENT [Concomitant]
     Indication: CHRONIC OBSTRUCTIVE PULMONARY DISEASE
     Route: 055
  5. ADVAIR [Concomitant]
     Indication: CHRONIC OBSTRUCTIVE PULMONARY DISEASE
     Route: 055
  6. PROAIR [Concomitant]
     Indication: CHRONIC OBSTRUCTIVE PULMONARY DISEASE
     Route: 055
  7. VITAMIN E [Concomitant]
     Indication: HEPATIC STEATOSIS
     Route: 048
     Dates: start: 201203
  8. GABITRIL [Concomitant]
     Indication: ANTIDEPRESSANT THERAPY
     Route: 048
  9. GLUCOVANCE [Concomitant]
     Indication: RENAL LITHIASIS PROPHYLAXIS
     Route: 048
     Dates: start: 2009
  10. XANAX [Concomitant]
     Route: 048
  11. PLAVIX [Concomitant]
     Indication: CARDIAC DISORDER
     Route: 048
  12. CARVEDILOL [Concomitant]
     Indication: BLOOD PRESSURE ABNORMAL
     Route: 048
     Dates: start: 2012
  13. TAMULOSIN [Concomitant]
     Indication: PROSTATIC DISORDER
     Route: 048
  14. WELCHOL [Concomitant]
     Indication: BLOOD CHOLESTEROL INCREASED
  15. NEURONTIN [Concomitant]
     Indication: PAIN
  16. BAYER ASPIRIN [Concomitant]
     Indication: CARDIAC DISORDER
  17. LOPRESSOR [Concomitant]
     Indication: CARDIAC DISORDER
  18. LOPRESSOR [Concomitant]
     Indication: BLOOD PRESSURE ABNORMAL
  19. FUROSEMIDE [Concomitant]
     Indication: DIURETIC THERAPY
  20. ALLOPURINOL [Concomitant]
     Indication: RENAL DISORDER
  21. LEVOXYL [Concomitant]
     Indication: THYROID DISORDER
  22. CYCLOBENZAPINE [Concomitant]
     Indication: MUSCLE RELAXANT THERAPY
  23. ROXYCODONE [Concomitant]
     Indication: PAIN
     Dosage: AS NEEDED
  24. MIRALAX [Concomitant]
     Indication: CONSTIPATION
     Dosage: BID
  25. HUMALOG [Concomitant]
  26. VICTOZA [Concomitant]
     Dosage: 1.8 UNIT PEN DAILY

REACTIONS (18)
  - Fall [Unknown]
  - Spinal fracture [Unknown]
  - Hip fracture [Unknown]
  - Lower limb fracture [Unknown]
  - Spinal compression fracture [Unknown]
  - Sciatic nerve injury [Unknown]
  - Myocardial infarction [Unknown]
  - Carotid artery stenosis [Unknown]
  - Thyroid cancer [Unknown]
  - Malignant melanoma [Unknown]
  - Muscle contractions involuntary [Unknown]
  - Mobility decreased [Unknown]
  - Chronic obstructive pulmonary disease [Unknown]
  - Cardiac disorder [Unknown]
  - Hepatic steatosis [Unknown]
  - Cardiac failure congestive [Unknown]
  - Depressed mood [Unknown]
  - Myalgia [Unknown]
